FAERS Safety Report 6518522-6 (Version None)
Quarter: 2009Q4

REPORT INFORMATION
  Report Type: 
  Country: None (occurrence: None)
  Receive Date: 20091226
  Receipt Date: 20091217
  Transmission Date: 20100525
  Serious: Yes (Hospitalization, Other)
  Sender: FDA-Public Use
  Company Number: US-JNJFOC-20091206415

PATIENT
  Sex: Female
  Weight: 65.32 kg

DRUGS (4)
  1. DURAGESIC-100 [Suspect]
     Indication: PAIN
     Dosage: NDC#: 5045803605
     Route: 062
  2. DURAGESIC-100 [Suspect]
     Dosage: NDC#: 5045809405
     Route: 062
  3. FOLIC ACID [Concomitant]
     Indication: VITAMIN SUPPLEMENTATION
     Route: 048
  4. UNKNOWN MEDICATION [Concomitant]
     Indication: GASTRIC DISORDER
     Route: 048

REACTIONS (6)
  - BLOOD CHOLESTEROL INCREASED [None]
  - NERVE INJURY [None]
  - PANIC ATTACK [None]
  - PRODUCT QUALITY ISSUE [None]
  - SHOULDER OPERATION [None]
  - WRONG TECHNIQUE IN DRUG USAGE PROCESS [None]
